FAERS Safety Report 24679264 (Version 1)
Quarter: 2024Q4

REPORT INFORMATION
  Report Type: Spontaneous
  Country: IT (occurrence: IT)
  Receive Date: 20241129
  Receipt Date: 20241129
  Transmission Date: 20250115
  Serious: Yes (Other)
  Sender: RANBAXY
  Company Number: IT-SUN PHARMACEUTICAL INDUSTRIES LTD-2024RR-481631

PATIENT
  Age: 80 Year
  Sex: Female
  Weight: 54 kg

DRUGS (2)
  1. GEMCITABINE [Suspect]
     Active Substance: GEMCITABINE
     Indication: Ovarian cancer
     Dosage: SCHEME: CARBOPLATIN ON DAY 1 + GEMCITABINE ON DAYS 1 AND 8 OF 21-DAY CYCLES 1ST CYCLE: 1250 MG IV OF
     Route: 065
  2. CARBOPLATIN [Suspect]
     Active Substance: CARBOPLATIN
     Indication: Ovarian cancer
     Dosage: SCHEME: CARBOPLATIN ON DAY 1 + GEMCITABINE ON DAYS 1 AND 8 OF 21-DAY CYCLES 1ST CYCLE: 270 MG IV OF
     Route: 065

REACTIONS (1)
  - Thrombocytopenia [Recovered/Resolved]

NARRATIVE: CASE EVENT DATE: 20240201
